FAERS Safety Report 5284804-1 (Version None)
Quarter: 2007Q1

REPORT INFORMATION
  Report Type: 
  Country: None (occurrence: None)
  Receive Date: 20061229
  Receipt Date: 20060509
  Transmission Date: 20070707
  Serious: Yes (Other)
  Sender: FDA-Public Use
  Company Number: PHEH2006US04828

PATIENT
  Age: 48 Year
  Sex: Female

DRUGS (3)
  1. CLOZARIL [Suspect]
     Indication: HALLUCINATION
  2. GEODON [Suspect]
     Indication: HALLUCINATION
  3. ZYPREXA [Suspect]

REACTIONS (4)
  - DELUSION [None]
  - HALLUCINATION [None]
  - POOR PERSONAL HYGIENE [None]
  - PSYCHOTIC DISORDER [None]
